FAERS Safety Report 8921805 (Version 3)
Quarter: 2013Q1

REPORT INFORMATION
  Report Type: Report from Study
  Country: US (occurrence: US)
  Receive Date: 20121122
  Receipt Date: 20130212
  Transmission Date: 20140127
  Serious: Yes (Hospitalization)
  Sender: FDA-Public Use
  Company Number: US-ACTELION-A-US2012-74634

PATIENT
  Age: 55 Year
  Sex: Female

DRUGS (5)
  1. VELETRI [Suspect]
     Indication: PULMONARY ARTERIAL HYPERTENSION
     Dosage: 20 NG/KG, PER MIN
     Route: 042
     Dates: start: 20120710
  2. VELETRI [Suspect]
     Dosage: 19 NG/KG, UNK
     Route: 042
  3. TRACLEER [Concomitant]
     Indication: PULMONARY ARTERIAL HYPERTENSION
     Route: 048
  4. SILDENAFIL [Concomitant]
  5. ASPIRIN [Concomitant]

REACTIONS (6)
  - Abdominal discomfort [Recovering/Resolving]
  - Dehydration [Recovering/Resolving]
  - Abdominal pain upper [Recovering/Resolving]
  - Pain in jaw [Not Recovered/Not Resolved]
  - Dysentery [Not Recovered/Not Resolved]
  - Dyspnoea [Not Recovered/Not Resolved]
